FAERS Safety Report 5377757-9 (Version None)
Quarter: 2007Q2

REPORT INFORMATION
  Report Type: 
  Country: None (occurrence: None)
  Receive Date: 20070629
  Receipt Date: 20070614
  Transmission Date: 20071010
  Serious: Yes (Disabling)
  Sender: FDA-Public Use
  Company Number: PHO-2007-012

PATIENT
  Age: 77 Year
  Sex: Female

DRUGS (1)
  1. PHOTOFRIN [Suspect]
     Indication: BLADDER CANCER
     Dosage: 130 MG, INTRAVENOUS/1 ADMINISTRATION
     Route: 042
     Dates: start: 20061218, end: 20061218

REACTIONS (1)
  - BLADDER DISORDER [None]
